FAERS Safety Report 12786882 (Version 1)
Quarter: 2016Q3

REPORT INFORMATION
  Report Type: Spontaneous
  Country: US (occurrence: US)
  Receive Date: 20160927
  Receipt Date: 20160927
  Transmission Date: 20161109
  Serious: No
  Sender: FDA-Public Use
  Company Number: US-ELI_LILLY_AND_COMPANY-US201609007425

PATIENT
  Age: 72 Year
  Sex: Male

DRUGS (4)
  1. HUMALOG [Suspect]
     Active Substance: INSULIN LISPRO
     Indication: DIABETES MELLITUS
     Dosage: 10 U, UNKNOWN
     Route: 065
     Dates: start: 2009
  2. METFORMINE [Concomitant]
     Active Substance: METFORMIN HYDROCHLORIDE
     Dosage: UNK, BID
  3. LEVEMIR [Concomitant]
     Active Substance: INSULIN DETEMIR
     Dosage: UNK, EACH EVENING
  4. HUMALOG [Suspect]
     Active Substance: INSULIN LISPRO
     Dosage: SLIDING SCALE, PRN
     Route: 065
     Dates: start: 1999

REACTIONS (1)
  - Injury associated with device [Recovered/Resolved]

NARRATIVE: CASE EVENT DATE: 20160919
